FAERS Safety Report 24714646 (Version 1)
Quarter: 2024Q4

REPORT INFORMATION
  Report Type: Spontaneous
  Country: CN (occurrence: CN)
  Receive Date: 20241209
  Receipt Date: 20241209
  Transmission Date: 20250115
  Serious: Yes (Life-Threatening, Hospitalization)
  Sender: STRIDES
  Company Number: CN-STRIDES ARCOLAB LIMITED-2024SP016290

PATIENT
  Age: 72 Year
  Sex: Male

DRUGS (11)
  1. OSELTAMIVIR [Suspect]
     Active Substance: OSELTAMIVIR
     Indication: Parainfluenzae virus infection
     Dosage: 75 MILLIGRAM, BID
     Route: 065
  2. CEFEPIME [Concomitant]
     Active Substance: CEFEPIME HYDROCHLORIDE
     Indication: Pneumonia
     Dosage: 2 GRAM, BID
     Route: 042
  3. CEFEPIME [Concomitant]
     Active Substance: CEFEPIME HYDROCHLORIDE
     Indication: Pleural effusion
  4. MOXIFLOXACIN [Concomitant]
     Active Substance: MOXIFLOXACIN
     Indication: Pneumonia
     Dosage: 250 MILLIGRAM, QD
     Route: 065
  5. MOXIFLOXACIN [Concomitant]
     Active Substance: MOXIFLOXACIN
     Indication: Pleural effusion
  6. DOXOFYLLINE [Concomitant]
     Active Substance: DOXOFYLLINE
     Indication: Pneumonia
     Dosage: 0.3 GRAM, QD
     Route: 065
  7. DOXOFYLLINE [Concomitant]
     Active Substance: DOXOFYLLINE
     Indication: Pleural effusion
  8. BUDESONIDE [Concomitant]
     Active Substance: BUDESONIDE
     Indication: Pneumonia
     Dosage: 1 MILLIGRAM (NEBULIZED)
     Route: 065
  9. BUDESONIDE [Concomitant]
     Active Substance: BUDESONIDE
     Indication: Pleural effusion
  10. TERBUTALINE [Concomitant]
     Active Substance: TERBUTALINE
     Indication: Pneumonia
     Dosage: 5 MILLIGRAM
     Route: 065
  11. TERBUTALINE [Concomitant]
     Active Substance: TERBUTALINE
     Indication: Pleural effusion

REACTIONS (3)
  - Condition aggravated [Recovered/Resolved]
  - Respiratory distress [Recovered/Resolved]
  - Drug ineffective for unapproved indication [Unknown]
